FAERS Safety Report 17137387 (Version 1)
Quarter: 2019Q4

REPORT INFORMATION
  Report Type: Report from Study
  Country: US (occurrence: US)
  Receive Date: 20191210
  Receipt Date: 20191210
  Transmission Date: 20200122
  Serious: Yes (Hospitalization)
  Sender: FDA-Public Use
  Company Number: US-BEH-2019110230

PATIENT
  Age: 72 Year
  Sex: Female

DRUGS (1)
  1. HIZENTRA [Suspect]
     Active Substance: HUMAN IMMUNOGLOBULIN G
     Indication: HUMORAL IMMUNE DEFECT
     Dosage: UNK
     Route: 058
     Dates: start: 20180101

REACTIONS (8)
  - Peripheral swelling [Unknown]
  - Headache [Unknown]
  - Pyrexia [Unknown]
  - No adverse event [Unknown]
  - Pneumonia [Unknown]
  - Immunoglobulins decreased [Unknown]
  - Overdose [Unknown]
  - Pneumonia [Unknown]

NARRATIVE: CASE EVENT DATE: 2018
